FAERS Safety Report 12138252 (Version 2)
Quarter: 2016Q1

REPORT INFORMATION
  Report Type: Spontaneous
  Country: US (occurrence: US)
  Receive Date: 20160302
  Receipt Date: 20160318
  Transmission Date: 20160526
  Serious: Yes (Other)
  Sender: FDA-Public Use
  Company Number: US-ASTRAZENECA-2016SE19676

PATIENT
  Age: 24196 Day
  Sex: Female

DRUGS (2)
  1. MOVANTIK [Suspect]
     Active Substance: NALOXEGOL OXALATE
     Indication: CONSTIPATION
     Route: 048
     Dates: start: 20151217
  2. METHADONE [Concomitant]
     Active Substance: METHADONE HYDROCHLORIDE
     Indication: PAIN
     Route: 048

REACTIONS (6)
  - Diarrhoea [Unknown]
  - Hyperhidrosis [Recovered/Resolved]
  - Abdominal pain [Unknown]
  - Drug withdrawal syndrome [Recovered/Resolved]
  - Spinal fracture [Unknown]
  - Neck pain [Unknown]

NARRATIVE: CASE EVENT DATE: 20160118
